FAERS Safety Report 25947436 (Version 1)
Quarter: 2025Q4

REPORT INFORMATION
  Report Type: Spontaneous
  Country: CA (occurrence: CA)
  Receive Date: 20251022
  Receipt Date: 20251022
  Transmission Date: 20260117
  Serious: Yes (Hospitalization, Other)
  Sender: AUROBINDO
  Company Number: CA-AUROBINDO-AUR-APL-2023-041617

PATIENT
  Age: 60 Year
  Sex: Female

DRUGS (2)
  1. NITROFURANTOIN [Suspect]
     Active Substance: NITROFURANTOIN
     Indication: Urinary tract infection
     Dosage: UNK
     Route: 065
  2. TRAVOPROST [Concomitant]
     Active Substance: TRAVOPROST
     Indication: Glaucoma
     Dosage: UNK
     Route: 047

REACTIONS (6)
  - Haemolytic anaemia [Recovered/Resolved]
  - Haemolysis [Recovered/Resolved]
  - Hyponatraemia [Recovered/Resolved]
  - Hypovolaemia [Recovered/Resolved]
  - Normocytic anaemia [Recovered/Resolved]
  - Vomiting [Recovered/Resolved]
